FAERS Safety Report 20667224 (Version 2)
Quarter: 2022Q2

REPORT INFORMATION
  Report Type: Report from Study
  Country: US (occurrence: US)
  Receive Date: 20220404
  Receipt Date: 20220616
  Transmission Date: 20220721
  Serious: Yes (Hospitalization, Other)
  Sender: FDA-Public Use
  Company Number: US-SA-2022SA108432

PATIENT
  Age: 65 Year
  Sex: Female

DRUGS (1)
  1. TERIFLUNOMIDE [Suspect]
     Active Substance: TERIFLUNOMIDE
     Indication: Multiple sclerosis
     Dosage: 14 MG, QD
     Route: 048
     Dates: start: 20210715

REACTIONS (7)
  - Atrial fibrillation [Unknown]
  - Cardioversion [Unknown]
  - Cardiac pacemaker insertion [Unknown]
  - Pruritus [Unknown]
  - Depressed mood [Unknown]
  - Loss of personal independence in daily activities [Unknown]
  - Alopecia [Recovered/Resolved]

NARRATIVE: CASE EVENT DATE: 20210101
